FAERS Safety Report 4710532-4 (Version None)
Quarter: 2005Q3

REPORT INFORMATION
  Report Type: 
  Country: None (occurrence: None)
  Receive Date: 20050711
  Receipt Date: 20050627
  Transmission Date: 20060218
  Serious: Yes (Hospitalization)
  Sender: FDA-Public Use
  Company Number: FR-AMGEN-UK140196

PATIENT
  Age: 78 Year
  Sex: Female

DRUGS (3)
  1. ARANESP [Suspect]
     Indication: DRUG USE FOR UNKNOWN INDICATION
     Route: 058
     Dates: start: 20050309, end: 20050509
  2. PEGASYS [Suspect]
     Route: 058
     Dates: start: 20050214, end: 20050309
  3. RIBAVIRIN [Suspect]
     Route: 048
     Dates: start: 20050214, end: 20050505

REACTIONS (4)
  - HEPATIC CIRRHOSIS [None]
  - METABOLIC ENCEPHALOPATHY [None]
  - PANCYTOPENIA [None]
  - SEPSIS [None]
